FAERS Safety Report 15503752 (Version 1)
Quarter: 2018Q4

REPORT INFORMATION
  Report Type: Spontaneous
  Country: US (occurrence: US)
  Receive Date: 20181009
  Receipt Date: 20181009
  Transmission Date: 20190205
  Serious: Yes (Hospitalization)
  Sender: FDA-Public Use
  Company Number: None

PATIENT
  Age: 46 Year
  Sex: Female

DRUGS (1)
  1. ACTHAR [Suspect]
     Active Substance: CORTICOTROPIN
     Indication: MULTIPLE SCLEROSIS
     Route: 058
     Dates: start: 20180830

REACTIONS (13)
  - Headache [None]
  - Irritability [None]
  - Appendicectomy [None]
  - Anxiety [None]
  - Pruritus [None]
  - Weight increased [None]
  - Feeling abnormal [None]
  - Contusion [None]
  - Acne [None]
  - Fatigue [None]
  - Muscular weakness [None]
  - Thirst [None]
  - Pollakiuria [None]

NARRATIVE: CASE EVENT DATE: 20180628
